FAERS Safety Report 10909561 (Version 1)
Quarter: 2015Q1

REPORT INFORMATION
  Report Type: Spontaneous
  Country: US (occurrence: US)
  Receive Date: 20150312
  Receipt Date: 20150312
  Transmission Date: 20150721
  Serious: No
  Sender: FDA-Public Use
  Company Number: US-SA-2014SA060970

PATIENT
  Age: 79 Year
  Sex: Female

DRUGS (2)
  1. LORATADINE. [Concomitant]
     Active Substance: LORATADINE
     Indication: EXPOSURE TO ALLERGEN
     Dosage: TREATMENT STARTED 2 YEARS AGO
     Route: 065
  2. NASACORT ALLERGY 24HR [Suspect]
     Active Substance: TRIAMCINOLONE ACETONIDE
     Indication: HYPERSENSITIVITY
     Dosage: DOSAGE: 2 SPRAYS
     Route: 065
     Dates: start: 20140417, end: 20140419

REACTIONS (1)
  - Therapeutic response decreased [Unknown]
